FAERS Safety Report 14252911 (Version 1)
Quarter: 2017Q4

REPORT INFORMATION
  Report Type: Spontaneous
  Country: US (occurrence: US)
  Receive Date: 20171206
  Receipt Date: 20171206
  Transmission Date: 20180321
  Serious: Yes (Other)
  Sender: FDA-Public Use
  Company Number: US-BEH-2017085535

PATIENT
  Age: 84 Year
  Sex: Male
  Weight: 77.98 kg

DRUGS (42)
  1. SODIUM CHLORIDE. [Concomitant]
     Active Substance: SODIUM CHLORIDE
  2. VESICARE [Concomitant]
     Active Substance: SOLIFENACIN SUCCINATE
  3. XOLAIR [Concomitant]
     Active Substance: OMALIZUMAB
  4. ZEMAIRA [Suspect]
     Active Substance: .ALPHA.1-PROTEINASE INHIBITOR HUMAN
     Indication: OBSTRUCTIVE AIRWAYS DISORDER
     Dosage: 60 MG/KG, UNK
     Route: 042
     Dates: start: 20100210
  5. LMX                                /00033401/ [Concomitant]
  6. CLINDAMYCIN. [Concomitant]
     Active Substance: CLINDAMYCIN
  7. TESTOSTERONE. [Concomitant]
     Active Substance: TESTOSTERONE
  8. COENZYME Q10 [Concomitant]
     Active Substance: UBIDECARENONE
  9. XOPENEX [Concomitant]
     Active Substance: LEVALBUTEROL HYDROCHLORIDE
  10. DIPHENHYDRAMINE. [Concomitant]
     Active Substance: DIPHENHYDRAMINE
  11. MONTELUKAST [Concomitant]
     Active Substance: MONTELUKAST SODIUM
  12. FUROSEMIDE. [Concomitant]
     Active Substance: FUROSEMIDE
  13. VITAMIN C [Concomitant]
     Active Substance: ASCORBIC ACID
  14. CALCIUM [Concomitant]
     Active Substance: CALCIUM
  15. FERROUS SULFATE. [Concomitant]
     Active Substance: FERROUS SULFATE
  16. COUMADIN [Concomitant]
     Active Substance: WARFARIN SODIUM
  17. ZYRTEC [Concomitant]
     Active Substance: CETIRIZINE HYDROCHLORIDE
  18. NORMAL SALINE [Concomitant]
     Active Substance: SODIUM CHLORIDE
  19. MYRBETRIQ [Concomitant]
     Active Substance: MIRABEGRON
  20. PROAIR HFA [Concomitant]
     Active Substance: ALBUTEROL SULFATE
  21. TESSALON [Concomitant]
     Active Substance: BENZONATATE
  22. TAMSULOSIN [Concomitant]
     Active Substance: TAMSULOSIN
  23. CELEBREX [Concomitant]
     Active Substance: CELECOXIB
  24. MULTIVITAMIN                       /00097801/ [Concomitant]
     Active Substance: VITAMINS
  25. CARVEDILOL. [Concomitant]
     Active Substance: CARVEDILOL
  26. OMEPRAZOLE. [Concomitant]
     Active Substance: OMEPRAZOLE
  27. KLOR-CON [Concomitant]
     Active Substance: POTASSIUM CHLORIDE
  28. CHERATUSSIN [Concomitant]
     Active Substance: AMMONIUM CHLORIDE\DEXTROMETHORPHAN\SODIUM CITRATE
  29. DULERA [Concomitant]
     Active Substance: FORMOTEROL FUMARATE DIHYDRATE\MOMETASONE FUROATE
  30. CALCIUM VITAMIN D [Concomitant]
     Active Substance: CALCIUM\VITAMIN D
  31. MUCINEX [Concomitant]
     Active Substance: GUAIFENESIN
  32. ELIQUIS [Concomitant]
     Active Substance: APIXABAN
  33. ZEMAIRA [Suspect]
     Active Substance: .ALPHA.1-PROTEINASE INHIBITOR HUMAN
     Dosage: UNK
     Route: 042
  34. EPINEPHRINE. [Concomitant]
     Active Substance: EPINEPHRINE
  35. ALBUTEROL                          /00139501/ [Concomitant]
     Active Substance: ALBUTEROL
  36. COLAGEN [Concomitant]
  37. VITAMIN D3 [Concomitant]
     Active Substance: CHOLECALCIFEROL
  38. FLUTICASONE. [Concomitant]
     Active Substance: FLUTICASONE
  39. AMIODARONE [Concomitant]
     Active Substance: AMIODARONE
  40. FISH OIL [Concomitant]
     Active Substance: FISH OIL
  41. ENABLEX [Concomitant]
     Active Substance: DARIFENACIN HYDROBROMIDE
  42. DILTIAZEM. [Concomitant]
     Active Substance: DILTIAZEM

REACTIONS (1)
  - Cardiac pacemaker insertion [Unknown]

NARRATIVE: CASE EVENT DATE: 20171106
